FAERS Safety Report 6655351-7 (Version None)
Quarter: 2010Q1

REPORT INFORMATION
  Report Type: 
  Country: None (occurrence: None)
  Receive Date: 20100329
  Receipt Date: 20100318
  Transmission Date: 20100710
  Serious: Yes (Other)
  Sender: FDA-Public Use
  Company Number: PHHY2010DE12990

PATIENT
  Sex: Female

DRUGS (5)
  1. CLOZAPINE [Suspect]
     Indication: SCHIZOPHRENIA
     Dosage: 200 MG, QD
     Route: 048
     Dates: start: 19930101, end: 20070101
  2. ZELDOX [Concomitant]
     Dosage: 100 MG/DAY
     Route: 048
     Dates: start: 20070201
  3. ANAFRANIL [Concomitant]
     Dosage: 25-37.5 MG/DAY
     Route: 048
  4. ANAFRANIL [Concomitant]
     Dosage: 50-150 MG/DAY
     Route: 048
  5. MARCUMAR [Concomitant]
     Dosage: UNK
     Dates: start: 20050101, end: 20080101

REACTIONS (1)
  - DEVICE FAILURE [None]
